FAERS Safety Report 18500017 (Version 2)
Quarter: 2020Q4

REPORT INFORMATION
  Report Type: Spontaneous
  Country: CA (occurrence: CA)
  Receive Date: 20201113
  Receipt Date: 20201228
  Transmission Date: 20210114
  Serious: Yes (Other)
  Sender: FDA-Public Use
  Company Number: CA-SA-2020SA311104

PATIENT

DRUGS (8)
  1. ALEMTUZUMAB [Suspect]
     Active Substance: ALEMTUZUMAB
     Indication: BONE MARROW CONDITIONING REGIMEN
  2. FLUDARABINE PHOSPHATE. [Suspect]
     Active Substance: FLUDARABINE PHOSPHATE
     Indication: IPEX SYNDROME
  3. FLUDARABINE PHOSPHATE. [Suspect]
     Active Substance: FLUDARABINE PHOSPHATE
     Indication: BONE MARROW CONDITIONING REGIMEN
  4. MELPHALAN. [Suspect]
     Active Substance: MELPHALAN
     Indication: BONE MARROW CONDITIONING REGIMEN
  5. MELPHALAN. [Suspect]
     Active Substance: MELPHALAN
     Indication: IPEX SYNDROME
  6. TACROLIMUS. [Suspect]
     Active Substance: TACROLIMUS
     Indication: IPEX SYNDROME
  7. ALEMTUZUMAB [Suspect]
     Active Substance: ALEMTUZUMAB
     Indication: IPEX SYNDROME
  8. PREDNISONE. [Suspect]
     Active Substance: PREDNISONE
     Indication: IPEX SYNDROME
     Route: 048

REACTIONS (7)
  - Graft versus host disease [Unknown]
  - Off label use [Unknown]
  - Autoimmune haemolytic anaemia [Unknown]
  - Bone marrow transplant rejection [Unknown]
  - Epstein-Barr virus infection reactivation [Unknown]
  - Immune system disorder [Unknown]
  - Colitis [Unknown]
